FAERS Safety Report 25777533 (Version 1)
Quarter: 2025Q3

REPORT INFORMATION
  Report Type: Spontaneous
  Country: EU (occurrence: EU)
  Receive Date: 20250909
  Receipt Date: 20250909
  Transmission Date: 20251020
  Serious: Yes (Hospitalization, Other)
  Sender: ASTELLAS
  Company Number: EU-GILEAD-2025-0725993

PATIENT
  Sex: Female

DRUGS (1)
  1. AMPHOTERICIN B [Suspect]
     Active Substance: AMPHOTERICIN B
     Indication: Product used for unknown indication
     Route: 065

REACTIONS (6)
  - Syncope [Unknown]
  - Nausea [Unknown]
  - Dyspnoea [Unknown]
  - Throat irritation [Unknown]
  - Dizziness [Unknown]
  - Accidental exposure to product [Unknown]
